FAERS Safety Report 22294144 (Version 2)
Quarter: 2023Q2

REPORT INFORMATION
  Report Type: Spontaneous
  Country: CA (occurrence: CA)
  Receive Date: 20230508
  Receipt Date: 20230522
  Transmission Date: 20230722
  Serious: Yes (Other)
  Sender: FDA-Public Use
  Company Number: CA-002147023-NVSC2023CA102757

PATIENT
  Sex: Female

DRUGS (12)
  1. AZITHROMYCIN [Suspect]
     Active Substance: AZITHROMYCIN
     Indication: Mycobacterium chelonae infection
     Dosage: UNK
     Route: 065
  2. AZITHROMYCIN [Suspect]
     Active Substance: AZITHROMYCIN
     Indication: Osteomyelitis
  3. AZITHROMYCIN [Suspect]
     Active Substance: AZITHROMYCIN
     Indication: Skin infection
  4. AZITHROMYCIN [Suspect]
     Active Substance: AZITHROMYCIN
     Indication: Soft tissue infection
  5. IMIPENEM [Suspect]
     Active Substance: IMIPENEM
     Indication: Mycobacterium chelonae infection
     Dosage: UNK
     Route: 065
  6. IMIPENEM [Suspect]
     Active Substance: IMIPENEM
     Indication: Osteomyelitis
  7. IMIPENEM [Suspect]
     Active Substance: IMIPENEM
     Indication: Skin infection
  8. IMIPENEM [Suspect]
     Active Substance: IMIPENEM
     Indication: Soft tissue infection
  9. PREDNISONE [Suspect]
     Active Substance: PREDNISONE
     Indication: Mycobacterium chelonae infection
     Dosage: 12.5 MG
     Route: 065
  10. PREDNISONE [Suspect]
     Active Substance: PREDNISONE
     Indication: Osteomyelitis
  11. PREDNISONE [Suspect]
     Active Substance: PREDNISONE
     Indication: Skin infection
  12. PREDNISONE [Suspect]
     Active Substance: PREDNISONE
     Indication: Soft tissue infection

REACTIONS (5)
  - Systemic lupus erythematosus [Unknown]
  - Immunosuppression [Unknown]
  - Skin lesion [Unknown]
  - Treatment failure [Unknown]
  - Therapeutic product effect decreased [Unknown]
